FAERS Safety Report 17826841 (Version 2)
Quarter: 2021Q2

REPORT INFORMATION
  Report Type: Other
  Country: BR (occurrence: BR)
  Receive Date: 20200527
  Receipt Date: 20210430
  Transmission Date: 20210717
  Serious: Yes (Other)
  Sender: FDA-Public Use
  Company Number: BR-ROCHE-2607141

PATIENT
  Age: 67 Year
  Sex: Female

DRUGS (2)
  1. XOLAIR [Suspect]
     Active Substance: OMALIZUMAB
     Dosage: UNK
     Route: 065
     Dates: start: 201907
  2. XOLAIR [Suspect]
     Active Substance: OMALIZUMAB
     Indication: CHRONIC SPONTANEOUS URTICARIA
     Dosage: UNK
     Route: 065
     Dates: start: 20190221

REACTIONS (12)
  - Rhinorrhoea [Recovered/Resolved]
  - Asthma [Not Recovered/Not Resolved]
  - Inappropriate schedule of product administration [Unknown]
  - Cough [Recovering/Resolving]
  - Influenza like illness [Recovered/Resolved]
  - Secretion discharge [Recovered/Resolved]
  - Decreased immune responsiveness [Recovered/Resolved]
  - Abdominal pain upper [Recovered/Resolved]
  - Influenza [Recovered/Resolved]
  - Hypersensitivity [Recovering/Resolving]
  - Pneumonia [Recovering/Resolving]
  - Urticaria [Recovering/Resolving]

NARRATIVE: CASE EVENT DATE: 201905
